FAERS Safety Report 18243132 (Version 4)
Quarter: 2021Q3

REPORT INFORMATION
  Report Type: Spontaneous
  Country: JP (occurrence: JP)
  Receive Date: 20200908
  Receipt Date: 20210827
  Transmission Date: 20211014
  Serious: Yes (Hospitalization)
  Sender: FDA-Public Use
  Company Number: JP-JNJFOC-A-CH2018-169453

PATIENT
  Age: 77 Year
  Sex: Female
  Weight: 43.1 kg

DRUGS (33)
  1. DIART [Concomitant]
     Indication: CARDIAC FAILURE
     Dosage: 60 MG, QD
     Dates: start: 20170414, end: 20170830
  2. OXYGEN. [Concomitant]
     Active Substance: OXYGEN
  3. ELIQUIS [Concomitant]
     Active Substance: APIXABAN
     Dates: start: 20190513, end: 20190520
  4. UPTRAVI [Suspect]
     Active Substance: SELEXIPAG
     Indication: PULMONARY HYPERTENSION
     Dosage: 1.4 MG, QD
     Route: 048
     Dates: start: 20170919, end: 20171128
  5. UPTRAVI [Suspect]
     Active Substance: SELEXIPAG
     Dosage: 1.2 MG, BID
     Route: 048
     Dates: start: 20181005, end: 20190115
  6. SAMSCA [Concomitant]
     Active Substance: TOLVAPTAN
     Indication: CARDIAC FAILURE
     Dosage: 7.5 MG, QD
     Dates: start: 20170827, end: 20170902
  7. UPTRAVI [Suspect]
     Active Substance: SELEXIPAG
     Dosage: 0.4 MG, BID
     Route: 048
     Dates: start: 20170619, end: 20170702
  8. UPTRAVI [Suspect]
     Active Substance: SELEXIPAG
     Dosage: 1 MG, QD
     Route: 048
     Dates: start: 20170703, end: 20170813
  9. UPTRAVI [Suspect]
     Active Substance: SELEXIPAG
     Dosage: 0.8 MG, BID
     Route: 048
     Dates: start: 20171129, end: 20180129
  10. WARFARIN [Concomitant]
     Active Substance: WARFARIN
     Indication: POST PROCEDURAL COMPLICATION
     Dosage: 3.5 MG, QD
     Dates: start: 20161004, end: 20180809
  11. CEFTRIAXONE SODIUM SESQUATERHYDRATE [Concomitant]
     Active Substance: CEFTRIAXONE SODIUM
     Dosage: 1 G, QD
     Dates: start: 20170828, end: 20170904
  12. UPTRAVI [Suspect]
     Active Substance: SELEXIPAG
     Indication: PULMONARY HYPERTENSION
     Dosage: 0.2 MG, QD
     Route: 048
     Dates: start: 20170327, end: 20170425
  13. UPTRAVI [Suspect]
     Active Substance: SELEXIPAG
     Dosage: 0.2 MG, BID
     Route: 048
     Dates: start: 20170426, end: 20170514
  14. UPTRAVI [Suspect]
     Active Substance: SELEXIPAG
     Dosage: 1 MG, BID
     Route: 048
     Dates: start: 20180409, end: 20181004
  15. ADCIRCA [Concomitant]
     Active Substance: TADALAFIL
     Indication: PULMONARY HYPERTENSION
     Dosage: 40 MG, QD
     Dates: start: 20160423
  16. SAMSCA [Concomitant]
     Active Substance: TOLVAPTAN
     Dosage: 15 MG, QD
     Dates: start: 20180418
  17. UPTRAVI [Suspect]
     Active Substance: SELEXIPAG
     Dosage: 0.6 MG, BID
     Route: 048
     Dates: start: 20170814, end: 20170918
  18. OPSUMIT [Suspect]
     Active Substance: MACITENTAN
     Indication: PULMONARY HYPERTENSION
     Dosage: 10 MG, QD
     Route: 048
     Dates: start: 20160414
  19. FUROSEMIDE. [Concomitant]
     Active Substance: FUROSEMIDE
     Indication: CARDIAC FAILURE
     Dosage: 40 MG, QD
     Dates: start: 20170327, end: 20170413
  20. FUROSEMIDE. [Concomitant]
     Active Substance: FUROSEMIDE
     Dosage: 20 MG, QD
     Dates: start: 20170831, end: 20170908
  21. FUROSEMIDE. [Concomitant]
     Active Substance: FUROSEMIDE
     Dosage: 10 MG, QD
     Dates: start: 20170909, end: 20170915
  22. SAMSCA [Concomitant]
     Active Substance: TOLVAPTAN
     Indication: RIGHT VENTRICULAR FAILURE
     Dosage: 7.5 MG, QD
     Dates: end: 20180417
  23. CEFTRIAXONE SODIUM SESQUATERHYDRATE [Concomitant]
     Active Substance: CEFTRIAXONE SODIUM
     Dosage: 2 G, QD
     Dates: start: 20180219, end: 20180228
  24. UPTRAVI [Suspect]
     Active Substance: SELEXIPAG
     Dosage: 1.3 MG, BID
     Route: 048
     Dates: start: 20190116, end: 20191114
  25. UPTRAVI [Suspect]
     Active Substance: SELEXIPAG
     Dosage: 1.4 MG X 2/DAY
     Route: 048
     Dates: start: 20191115
  26. FUROSEMIDE. [Concomitant]
     Active Substance: FUROSEMIDE
     Dosage: 20 MG, QD
     Dates: start: 20180615
  27. WARFARIN [Concomitant]
     Active Substance: WARFARIN
     Dosage: 4 MG, QD
     Dates: start: 20180810
  28. MINOCYCLINE HYDROCHLORIDE. [Concomitant]
     Active Substance: MINOCYCLINE HYDROCHLORIDE
     Indication: LARGE INTESTINAL POLYPECTOMY
     Dosage: 200 MG, QD
     Dates: start: 20170828, end: 20170831
  29. MINOCYCLINE HYDROCHLORIDE. [Concomitant]
     Active Substance: MINOCYCLINE HYDROCHLORIDE
     Dates: start: 20191213, end: 20191216
  30. UPTRAVI [Suspect]
     Active Substance: SELEXIPAG
     Dosage: 0.6 MG, QD
     Route: 048
     Dates: start: 20170515, end: 20170618
  31. UPTRAVI [Suspect]
     Active Substance: SELEXIPAG
     Dosage: 0.9 MG, BID
     Route: 048
     Dates: start: 20180130, end: 20180408
  32. FUROSEMIDE. [Concomitant]
     Active Substance: FUROSEMIDE
     Dosage: 40 MG, QD
     Dates: start: 20180531, end: 20180614
  33. SELARA [Concomitant]
     Active Substance: EPLERENONE

REACTIONS (18)
  - Dyspnoea at rest [Recovered/Resolved]
  - Oropharyngeal pain [Recovered/Resolved]
  - Orthopnoea [Recovered/Resolved]
  - Hypoalbuminaemia [Unknown]
  - Pneumonia aspiration [Recovered/Resolved]
  - Pleural effusion [Recovered/Resolved]
  - Pneumonia [Recovered/Resolved]
  - Pyrexia [Recovered/Resolved]
  - Cardiac failure congestive [Recovered/Resolved]
  - Anaemia [Recovered/Resolved]
  - Right ventricular failure [Recovered/Resolved]
  - Dyspnoea [Recovering/Resolving]
  - Large intestine polyp [Recovered/Resolved]
  - Large intestinal polypectomy [Recovered/Resolved]
  - Off label use [Unknown]
  - Bacterial infection [Recovered/Resolved]
  - Cardiac failure [Recovered/Resolved]
  - Weight increased [Recovered/Resolved]

NARRATIVE: CASE EVENT DATE: 20170321
